FAERS Safety Report 23968294 (Version 1)
Quarter: 2024Q2

REPORT INFORMATION
  Report Type: Report from Study
  Country: US (occurrence: US)
  Receive Date: 20240612
  Receipt Date: 20240612
  Transmission Date: 20240716
  Serious: Yes (Other)
  Sender: FDA-Public Use
  Company Number: US-ARGENX-2024-ARGX-US004023

PATIENT

DRUGS (1)
  1. VYVGART [Suspect]
     Active Substance: EFGARTIGIMOD ALFA-FCAB
     Indication: Product used for unknown indication
     Route: 042

REACTIONS (9)
  - Loss of consciousness [Unknown]
  - Immune system disorder [Unknown]
  - Asthenia [Unknown]
  - Dehydration [Unknown]
  - Illness [Unknown]
  - Exposure to communicable disease [Unknown]
  - Malaise [Unknown]
  - Oropharyngeal pain [Unknown]
  - Vomiting [Unknown]

NARRATIVE: CASE EVENT DATE: 20240603
